FAERS Safety Report 8367012-7 (Version None)
Quarter: 2012Q2

REPORT INFORMATION
  Report Type: 
  Country: None (occurrence: None)
  Receive Date: 20120517
  Receipt Date: 20120508
  Transmission Date: 20120825
  Serious: Yes (Other)
  Sender: FDA-Public Use
  Company Number: US-JNJFOC-20120509924

PATIENT
  Age: 64 Year
  Sex: Female
  Weight: 102.06 kg

DRUGS (2)
  1. NEOSPORIN [Suspect]
     Indication: SKIN LESION
     Dosage: 1/4 OF A PEA SIZED AMOUNT
     Route: 061
     Dates: start: 20120504, end: 20120504
  2. LISINOPRIL [Suspect]
     Indication: HYPERTENSION
     Route: 065

REACTIONS (3)
  - ANAPHYLACTIC REACTION [None]
  - OFF LABEL USE [None]
  - PAIN [None]
